FAERS Safety Report 6284154-0 (Version None)
Quarter: 2009Q3

REPORT INFORMATION
  Report Type: 
  Country: None (occurrence: None)
  Receive Date: 20090722
  Receipt Date: 20090708
  Transmission Date: 20100115
  Serious: Yes (Other)
  Sender: FDA-Public Use
  Company Number: 001267

PATIENT
  Age: 24 Month
  Sex: Female

DRUGS (4)
  1. OMEPRAZOLE [Suspect]
     Indication: PROPHYLAXIS
     Dosage: (20 MG TRANSMAMMARY)
     Route: 063
     Dates: start: 20090604, end: 20090618
  2. LAMOTRIGINE [Concomitant]
  3. ASPIRIN CHILDREN [Concomitant]
  4. RANITIDINE HYDROCHLORIDE [Concomitant]

REACTIONS (4)
  - DIARRHOEA [None]
  - DRUG EXPOSURE VIA BREAST MILK [None]
  - DRUG TOXICITY [None]
  - FAECES DISCOLOURED [None]
